FAERS Safety Report 8561370-6 (Version None)
Quarter: 2012Q3

REPORT INFORMATION
  Report Type: 
  Country: None (occurrence: None)
  Receive Date: 20120802
  Receipt Date: 20120724
  Transmission Date: 20120928
  Serious: Yes (Other)
  Sender: FDA-Public Use
  Company Number: US-ASTRAZENECA-2012SE27256

PATIENT
  Age: 41 Year
  Sex: Female
  Weight: 100.7 kg

DRUGS (12)
  1. OMEPRAZOLE [Suspect]
     Route: 048
  2. KEPPRA [Concomitant]
     Route: 048
  3. AMITRIPTYLINE HCL [Concomitant]
     Route: 048
  4. LISINOPRIL [Suspect]
     Route: 048
  5. FERROUS SULFATE TAB [Concomitant]
     Route: 048
  6. DILANTIN [Concomitant]
     Dosage: 3 IN THE MORNING AND 2 AT NIGHT
  7. TEGRETOL [Concomitant]
     Route: 048
  8. VISTARIL [Concomitant]
     Route: 048
  9. EXEDRIN [Concomitant]
     Dosage: PRN
  10. NEXIUM [Suspect]
     Route: 048
  11. MIRALAX [Concomitant]
     Route: 048
  12. OMEPRAZOLE [Suspect]
     Route: 048

REACTIONS (24)
  - HYPERTENSION [None]
  - MENORRHAGIA [None]
  - DENTAL CARIES [None]
  - TOOTH DISORDER [None]
  - IRON DEFICIENCY ANAEMIA [None]
  - HYPOKALAEMIA [None]
  - RECTAL HAEMORRHAGE [None]
  - GINGIVAL ERYTHEMA [None]
  - EPILEPSY [None]
  - GASTROOESOPHAGEAL REFLUX DISEASE [None]
  - DIZZINESS [None]
  - ANORECTAL DISCOMFORT [None]
  - CONSTIPATION [None]
  - HAEMORRHOIDS [None]
  - MENSTRUATION IRREGULAR [None]
  - DRUG DOSE OMISSION [None]
  - HEADACHE [None]
  - MIGRAINE [None]
  - CONVULSION [None]
  - FATIGUE [None]
  - HYPERGLYCAEMIA [None]
  - SOMNOLENCE [None]
  - CHEST PAIN [None]
  - ELECTROCARDIOGRAM QT PROLONGED [None]
